FAERS Safety Report 16247394 (Version 1)
Quarter: 2019Q2

REPORT INFORMATION
  Report Type: Spontaneous
  Country: US (occurrence: US)
  Receive Date: 20190428
  Receipt Date: 20190428
  Transmission Date: 20190711
  Serious: No
  Sender: FDA-Public Use
  Company Number: US-JNJFOC-20190409828

PATIENT
  Sex: Female

DRUGS (1)
  1. TYLENOL EXTRA STRENGTH [Suspect]
     Active Substance: ACETAMINOPHEN
     Indication: SWELLING
     Route: 048

REACTIONS (3)
  - Therapeutic response unexpected [Unknown]
  - Off label use [Unknown]
  - Product use in unapproved indication [Unknown]
